FAERS Safety Report 6651414-0 (Version None)
Quarter: 2010Q1

REPORT INFORMATION
  Report Type: 
  Country: None (occurrence: None)
  Receive Date: 20100325
  Receipt Date: 20100312
  Transmission Date: 20100710
  Serious: Yes (Hospitalization)
  Sender: FDA-Public Use
  Company Number: BE-ELI_LILLY_AND_COMPANY-BE201001001254

PATIENT
  Sex: Female
  Weight: 62.5 kg

DRUGS (5)
  1. PROZAC [Suspect]
     Indication: DEPRESSION
     Dosage: 20 MG, DAILY (1/D)
     Route: 048
     Dates: start: 20021007
  2. OMEPRAZOLE [Concomitant]
     Indication: OESOPHAGITIS
     Dosage: 20 MG, DAILY (1/D)
     Route: 065
  3. XENICAL [Concomitant]
     Dosage: UNK, UNKNOWN
     Route: 065
  4. BONIVA [Concomitant]
     Dosage: UNK, UNKNOWN
     Route: 065
  5. CRESTOR /01588602/ [Concomitant]
     Indication: HYPERCHOLESTEROLAEMIA
     Dosage: 10 MG, DAILY (1/D)

REACTIONS (9)
  - AKATHISIA [None]
  - ASTHENIA [None]
  - CHEST PAIN [None]
  - FACIAL PARESIS [None]
  - HEADACHE [None]
  - HYPOKINESIA [None]
  - MENTAL IMPAIRMENT [None]
  - SPEECH DISORDER [None]
  - TREMOR [None]
